FAERS Safety Report 7803441-5 (Version None)
Quarter: 2011Q4

REPORT INFORMATION
  Report Type: 
  Country: None (occurrence: None)
  Receive Date: 20111007
  Receipt Date: 20111005
  Transmission Date: 20120403
  Serious: Yes (Other)
  Sender: FDA-Public Use
  Company Number: US-AMGEN AB-QUU437354

PATIENT
  Age: 80 Year
  Sex: Female
  Weight: 97.8 kg

DRUGS (13)
  1. PLATELETS [Concomitant]
     Dosage: UNK UNK, PRN
  2. DOCUSATE SODIUM [Concomitant]
     Dosage: UNK UNK, PRN
  3. RITUXIMAB [Concomitant]
     Indication: IDIOPATHIC THROMBOCYTOPENIC PURPURA
  4. LISINOPRIL [Concomitant]
     Dosage: 10 MG, UNK
  5. CORTICOSTEROIDS [Concomitant]
     Indication: IDIOPATHIC THROMBOCYTOPENIC PURPURA
  6. TRIMETHOPRIM + SULFAMETHOXAZOLE [Concomitant]
     Dosage: UNK UNK, 3 TIMES/WK
  7. ATORVASTATIN CALCIUM [Concomitant]
     Dosage: 10 MG, UNK
  8. NPLATE [Suspect]
     Indication: IDIOPATHIC THROMBOCYTOPENIC PURPURA
     Dosage: 285 MUG, QWK
     Route: 058
     Dates: start: 20100812
  9. METOPROLOL TARTRATE [Concomitant]
     Dosage: 100 MG, UNK
  10. FUROSEMIDE [Concomitant]
     Dosage: 20 MG, QD
  11. DOXEPIN [Concomitant]
  12. DEXAMETHASONE [Concomitant]
     Dosage: 1 MG, QOD
     Dates: start: 20100626, end: 20100909
  13. METRONIDAZOLE [Concomitant]

REACTIONS (10)
  - LYMPHOCYTOSIS [None]
  - ECCHYMOSIS [None]
  - THERAPEUTIC RESPONSE DECREASED [None]
  - VASCULAR ANOMALY [None]
  - WEIGHT INCREASED [None]
  - HAEMORRHAGE [None]
  - OEDEMA PERIPHERAL [None]
  - DEEP VEIN THROMBOSIS [None]
  - FATIGUE [None]
  - MUSCULAR WEAKNESS [None]
